FAERS Safety Report 5132306-5 (Version None)
Quarter: 2006Q4

REPORT INFORMATION
  Report Type: 
  Country: None (occurrence: None)
  Receive Date: 20061020
  Receipt Date: 20061020
  Transmission Date: 20070319
  Serious: Yes (Other)
  Sender: FDA-Public Use
  Company Number: None

PATIENT
  Sex: Male

DRUGS (1)
  1. CUTTER BRAND INSECT REPELLANT (50% DEET) [Suspect]

REACTIONS (7)
  - CIRCULATORY COLLAPSE [None]
  - DRUG INTERACTION [None]
  - DYSPNOEA [None]
  - ERYTHEMA [None]
  - FEELING HOT [None]
  - NONSPECIFIC REACTION [None]
  - THROAT TIGHTNESS [None]
